FAERS Safety Report 7445546-7 (Version None)
Quarter: 2011Q2

REPORT INFORMATION
  Report Type: 
  Country: None (occurrence: None)
  Receive Date: 20110420
  Receipt Date: 20110405
  Transmission Date: 20111010
  Serious: Yes (Hospitalization)
  Sender: FDA-Public Use
  Company Number: 030749

PATIENT
  Sex: Male
  Weight: 78 kg

DRUGS (2)
  1. ZONISAMIDE [Suspect]
     Indication: EPILEPSY
     Dosage: 250 MG BID ORAL
     Route: 048
     Dates: start: 20101208
  2. LEVETIRACETAM [Suspect]
     Indication: EPILEPSY
     Dosage: 1500 MG BID ORAL;
     Route: 048
     Dates: start: 20051118

REACTIONS (1)
  - STATUS EPILEPTICUS [None]
